FAERS Safety Report 9097085 (Version 1)
Quarter: 2013Q1

REPORT INFORMATION
  Report Type: Spontaneous
  Country: NO (occurrence: None)
  Receive Date: 20130123
  Receipt Date: 20130123
  Transmission Date: 20140127
  Serious: Yes (Death, Hospitalization, Other)
  Sender: FDA-Public Use
  Company Number: AUR-APL-2013-00738

PATIENT
  Age: 41 Year
  Sex: Female

DRUGS (8)
  1. METFORMIN (METFORMIN) [Suspect]
     Route: 048
     Dates: start: 1990
  2. LISINOPRIL [Concomitant]
  3. AMLODIPINE [Concomitant]
  4. SIMVASTATIN [Concomitant]
  5. NOVOMIX 30 FLEXPEN (NOVOMIX) [Concomitant]
  6. INSULIN HUMAN INJECTION (INSULIN HUMAN) [Concomitant]
  7. INSULATARD FLEXPEN(INSULIN INJECTION, ISOPHANE) [Concomitant]
  8. SELO-ZOK (METOPROLOL SUCCINATE) [Concomitant]

REACTIONS (4)
  - Retinopathy [None]
  - Vomiting [None]
  - Dehydration [None]
  - Lactic acidosis [None]
